FAERS Safety Report 5212416-4 (Version None)
Quarter: 2007Q1

REPORT INFORMATION
  Report Type: 
  Country: None (occurrence: None)
  Receive Date: 20070118
  Receipt Date: 20070109
  Transmission Date: 20070707
  Serious: Yes (Other)
  Sender: FDA-Public Use
  Company Number: US-PFIZER INC-2005086507

PATIENT
  Sex: Female

DRUGS (4)
  1. NEURONTIN [Suspect]
     Indication: BIPOLAR DISORDER
  2. REMERON [Concomitant]
     Dates: start: 20030101, end: 20030101
  3. PAXIL [Concomitant]
     Dates: start: 20030101, end: 20030101
  4. LITHIUM CARBONATE [Concomitant]
     Dates: start: 20030101, end: 20030101

REACTIONS (7)
  - AMNESIA [None]
  - DEPRESSION [None]
  - DRUG INEFFECTIVE [None]
  - HYPOMANIA [None]
  - IMPAIRED WORK ABILITY [None]
  - SELF INJURIOUS BEHAVIOUR [None]
  - SUICIDE ATTEMPT [None]
